FAERS Safety Report 7537942-4 (Version None)
Quarter: 2011Q2

REPORT INFORMATION
  Report Type: 
  Country: None (occurrence: None)
  Receive Date: 20110609
  Receipt Date: 20110607
  Transmission Date: 20111010
  Serious: Yes (Other)
  Sender: FDA-Public Use
  Company Number: JP-PFIZER INC-2011124050

PATIENT

DRUGS (1)
  1. ZYVOX [Suspect]
     Route: 065

REACTIONS (1)
  - HYPONATRAEMIA [None]
